FAERS Safety Report 7571608-X (Version None)
Quarter: 2011Q2

REPORT INFORMATION
  Report Type: 
  Country: None (occurrence: None)
  Receive Date: 20110624
  Receipt Date: 20110621
  Transmission Date: 20111010
  Serious: Yes (Other)
  Sender: FDA-Public Use
  Company Number: GB-BRISTOL-MYERS SQUIBB COMPANY-15848997

PATIENT
  Sex: Female

DRUGS (2)
  1. ETOPOSIDE [Suspect]
  2. PIPERACILLIN AND TAZOBACTAM [Concomitant]

REACTIONS (1)
  - COLITIS [None]
